FAERS Safety Report 12217728 (Version 2)
Quarter: 2016Q2

REPORT INFORMATION
  Report Type: Spontaneous
  Country: PT (occurrence: PT)
  Receive Date: 20160329
  Receipt Date: 20160519
  Transmission Date: 20160815
  Serious: Yes (Hospitalization, Other)
  Sender: FDA-Public Use
  Company Number: PT-SUN PHARMACEUTICAL INDUSTRIES LTD-2016RR-113896

PATIENT

DRUGS (4)
  1. ALPRAZOLAM. [Interacting]
     Active Substance: ALPRAZOLAM
     Indication: DEPRESSION
  2. ALPRAZOLAM. [Interacting]
     Active Substance: ALPRAZOLAM
     Indication: ANXIETY DISORDER
     Dosage: 0.5 MG, DAILY
     Route: 064
  3. VENLAFAXINE [Interacting]
     Active Substance: VENLAFAXINE HYDROCHLORIDE
     Indication: DEPRESSION
  4. VENLAFAXINE [Suspect]
     Active Substance: VENLAFAXINE HYDROCHLORIDE
     Indication: ANXIETY DISORDER
     Dosage: 75 MG, DAILY
     Route: 064

REACTIONS (6)
  - Ejection fraction decreased [Recovered/Resolved]
  - Drug interaction [Recovered/Resolved]
  - Ventricular dysfunction [Recovered/Resolved]
  - Dilatation ventricular [Recovered/Resolved]
  - Mitral valve incompetence [Recovered/Resolved]
  - Foetal exposure during pregnancy [Recovered/Resolved]
